FAERS Safety Report 4791792-0 (Version None)
Quarter: 2005Q4

REPORT INFORMATION
  Report Type: 
  Country: None (occurrence: None)
  Receive Date: 20051005
  Receipt Date: 20050920
  Transmission Date: 20060501
  Serious: Yes (Disabling)
  Sender: FDA-Public Use
  Company Number: 2005BI017504

PATIENT
  Age: 63 Year
  Sex: Female

DRUGS (7)
  1. ZEVALIN [Suspect]
     Indication: NON-HODGKIN'S LYMPHOMA
     Dosage: 250 MG/M2; 1IX; IV; 5 MCI; 1X;IV; 250 MG/M2; 1X IV; 0.4 MCI; 1X; IV
     Route: 042
     Dates: start: 20040909, end: 20040909
  2. ZEVALIN [Suspect]
     Indication: NON-HODGKIN'S LYMPHOMA
     Dosage: 250 MG/M2; 1IX; IV; 5 MCI; 1X;IV; 250 MG/M2; 1X IV; 0.4 MCI; 1X; IV
     Route: 042
     Dates: start: 20040909, end: 20040909
  3. ZEVALIN [Suspect]
     Indication: NON-HODGKIN'S LYMPHOMA
     Dosage: 250 MG/M2; 1IX; IV; 5 MCI; 1X;IV; 250 MG/M2; 1X IV; 0.4 MCI; 1X; IV
     Route: 042
     Dates: start: 20040916, end: 20040916
  4. ZEVALIN [Suspect]
     Indication: NON-HODGKIN'S LYMPHOMA
     Dosage: 250 MG/M2; 1IX; IV; 5 MCI; 1X;IV; 250 MG/M2; 1X IV; 0.4 MCI; 1X; IV
     Route: 042
     Dates: start: 20040916, end: 20040916
  5. ZEVALIN [Suspect]
  6. ZEVALIN [Suspect]
  7. ZEVALIN [Suspect]

REACTIONS (6)
  - ANGIOSARCOMA [None]
  - FALL [None]
  - FEMORAL NECK FRACTURE [None]
  - LEUKOPENIA [None]
  - NEUTROPENIA [None]
  - SQUAMOUS CELL CARCINOMA [None]
